FAERS Safety Report 25647811 (Version 2)
Quarter: 2025Q3

REPORT INFORMATION
  Report Type: Spontaneous
  Country: CH (occurrence: CH)
  Receive Date: 20250806
  Receipt Date: 20250807
  Transmission Date: 20251021
  Serious: Yes (Other)
  Sender: SANDOZ
  Company Number: CH-SANDOZ-SDZ2025CH049369

PATIENT
  Age: 61 Year
  Sex: Female
  Weight: 83 kg

DRUGS (1)
  1. ACLASTA [Suspect]
     Active Substance: ZOLEDRONIC ACID
     Indication: Osteoporosis
     Route: 042
     Dates: start: 20250520, end: 20250520

REACTIONS (9)
  - Blood pressure fluctuation [Recovered/Resolved]
  - Polyarthritis [Recovered/Resolved]
  - Sensory disturbance [Recovered/Resolved]
  - Peripheral swelling [Unknown]
  - Hypertension [Recovered/Resolved]
  - Hypoaesthesia [Unknown]
  - Back pain [Unknown]
  - Pain in extremity [Unknown]
  - Arthralgia [Unknown]

NARRATIVE: CASE EVENT DATE: 20250520
